FAERS Safety Report 25720117 (Version 1)
Quarter: 2025Q3

REPORT INFORMATION
  Report Type: Report from Study
  Country: EU (occurrence: EU)
  Receive Date: 20250825
  Receipt Date: 20250825
  Transmission Date: 20251020
  Serious: Yes (Death, Hospitalization, Other)
  Sender: CELLTRION
  Company Number: EU-CELLTRION INC.-2023DE005645

PATIENT

DRUGS (15)
  1. ADALIMUMAB [Suspect]
     Active Substance: ADALIMUMAB
     Indication: Rheumatoid arthritis
     Route: 065
     Dates: end: 20230118
  2. ADALIMUMAB [Suspect]
     Active Substance: ADALIMUMAB
  3. ALLOPURINOL [Concomitant]
     Active Substance: ALLOPURINOL
  4. CHOLECALCIFEROL [Concomitant]
     Active Substance: CHOLECALCIFEROL
  5. ESCITALOPRAM [Concomitant]
     Active Substance: ESCITALOPRAM OXALATE
  6. FOLIC ACID [Concomitant]
     Active Substance: FOLIC ACID
     Dosage: 5 MILLIGRAM, QWK
  7. METFORMIN HYDROCHLORIDE [Concomitant]
     Active Substance: METFORMIN HYDROCHLORIDE
  8. METOPROLOL SUCCINATE [Concomitant]
     Active Substance: METOPROLOL SUCCINATE
  9. METHOTREXATE SODIUM [Concomitant]
     Active Substance: METHOTREXATE SODIUM
     Route: 065
     Dates: end: 202211
  10. NOVALGIN (METAMIZOLE SODIUM) [Concomitant]
     Active Substance: METAMIZOLE SODIUM
  11. PANTOPRAZOLE SODIUM [Concomitant]
     Active Substance: PANTOPRAZOLE SODIUM
  12. PRAMIPEXOLE DIHYDROCHLORIDE [Concomitant]
     Active Substance: PRAMIPEXOLE DIHYDROCHLORIDE
  13. PREDNISOLONE [Concomitant]
     Active Substance: PREDNISOLONE
  14. BENSERAZIDE\LEVODOPA [Concomitant]
     Active Substance: BENSERAZIDE\LEVODOPA
  15. BENSERAZIDE\LEVODOPA [Concomitant]
     Active Substance: BENSERAZIDE\LEVODOPA

REACTIONS (1)
  - Lung cancer metastatic [Fatal]

NARRATIVE: CASE EVENT DATE: 20221101
